FAERS Safety Report 15499665 (Version 3)
Quarter: 2018Q4

REPORT INFORMATION
  Report Type: Spontaneous
  Country: GB (occurrence: GB)
  Receive Date: 20181015
  Receipt Date: 20181107
  Transmission Date: 20190205
  Serious: Yes (Death, Hospitalization)
  Sender: FDA-Public Use
  Company Number: GB-PFIZER INC-2018410524

PATIENT
  Age: 82 Year
  Sex: Male

DRUGS (2)
  1. DALTEPARIN SODIUM [Suspect]
     Active Substance: DALTEPARIN SODIUM
     Dosage: 12500 IU, UNK (TREATMENT DOSE)
     Dates: start: 20171210
  2. DALTEPARIN SODIUM [Suspect]
     Active Substance: DALTEPARIN SODIUM
     Indication: PULMONARY EMBOLISM
     Dosage: 1 DF, 1X/DAY
     Dates: start: 201702

REACTIONS (14)
  - QRS axis abnormal [Unknown]
  - Hypotension [Unknown]
  - Neutropenia [Unknown]
  - Haemoptysis [Unknown]
  - Sepsis [Unknown]
  - Renal impairment [Unknown]
  - Tachycardia [Unknown]
  - Pleural effusion [Unknown]
  - Bundle branch block right [Unknown]
  - Condition aggravated [Unknown]
  - Hypoxia [Unknown]
  - Pneumonia [Fatal]
  - Nephrotic syndrome [Unknown]
  - Pancytopenia [Unknown]
